FAERS Safety Report 5396728-X (Version None)
Quarter: 2007Q3

REPORT INFORMATION
  Report Type: 
  Country: None (occurrence: None)
  Receive Date: 20070725
  Receipt Date: 20070725
  Transmission Date: 20080115
  Serious: Yes (Other)
  Sender: FDA-Public Use
  Company Number: A0665941A

PATIENT
  Age: 45 Year
  Sex: Male

DRUGS (1)
  1. NICORETTE [Suspect]
     Indication: SMOKING CESSATION THERAPY
     Route: 002

REACTIONS (4)
  - FACIAL PALSY [None]
  - HYPOAESTHESIA FACIAL [None]
  - INTENTIONAL DRUG MISUSE [None]
  - INTRANASAL HYPOAESTHESIA [None]
